FAERS Safety Report 4887868-X (Version None)
Quarter: 2006Q1

REPORT INFORMATION
  Report Type: 
  Country: None (occurrence: None)
  Receive Date: 20060123
  Receipt Date: 20050330
  Transmission Date: 20060701
  Serious: Yes (Hospitalization, Disabling)
  Sender: FDA-Public Use
  Company Number: US-MERCK-0503USA05237

PATIENT
  Age: 53 Year
  Sex: Male
  Weight: 84 kg

DRUGS (13)
  1. VIOXX [Suspect]
     Indication: BACK PAIN
     Route: 048
     Dates: start: 20030708, end: 20040930
  2. VIOXX [Suspect]
     Route: 048
     Dates: start: 20030708, end: 20040930
  3. VIOXX [Suspect]
     Route: 048
     Dates: start: 20030708, end: 20040930
  4. VIOXX [Suspect]
     Indication: PAIN IN EXTREMITY
     Route: 048
     Dates: start: 20030708, end: 20040930
  5. VIOXX [Suspect]
     Route: 048
     Dates: start: 20030708, end: 20040930
  6. VIOXX [Suspect]
     Route: 048
     Dates: start: 20030708, end: 20040930
  7. DEPO-TESTOSTERONE [Concomitant]
     Indication: HYPOGONADISM
     Route: 065
     Dates: start: 19900101, end: 20040621
  8. DEPO-TESTOSTERONE [Concomitant]
     Route: 065
     Dates: start: 20040831
  9. PRILOSEC [Concomitant]
     Route: 065
  10. TRAZODONE HYDROCHLORIDE [Concomitant]
     Route: 065
  11. VITAMINS (UNSPECIFIED) [Concomitant]
     Route: 065
  12. ASPIRIN [Concomitant]
     Route: 065
  13. LORAZEPAM [Concomitant]
     Route: 065

REACTIONS (12)
  - ANOREXIA [None]
  - ANXIETY [None]
  - ARTERIOSCLEROSIS [None]
  - CEREBROVASCULAR ACCIDENT [None]
  - DEPRESSION [None]
  - INFECTION [None]
  - INTERVERTEBRAL DISC PROTRUSION [None]
  - POOR QUALITY SLEEP [None]
  - SEROTONIN SYNDROME [None]
  - SPINAL CORD COMPRESSION [None]
  - VERTEBRAL ARTERY STENOSIS [None]
  - WEIGHT DECREASED [None]
